FAERS Safety Report 5987569-0 (Version None)
Quarter: 2008Q4

REPORT INFORMATION
  Report Type: 
  Country: None (occurrence: None)
  Receive Date: 20081209
  Receipt Date: 20081201
  Transmission Date: 20090506
  Serious: Yes (Death)
  Sender: FDA-Public Use
  Company Number: FR-CELGENEUS-056-20785-08111504

PATIENT
  Age: 73 Day
  Sex: Male
  Weight: 65 kg

DRUGS (1)
  1. THALIDOMIDE LAPHAL [Suspect]
     Indication: MYELOFIBROSIS
     Route: 065
     Dates: end: 20070917

REACTIONS (2)
  - DRUG INEFFECTIVE [None]
  - HAEMORRHAGE [None]
